FAERS Safety Report 10241897 (Version 1)
Quarter: 2014Q2

REPORT INFORMATION
  Report Type: Spontaneous
  Country: US (occurrence: US)
  Receive Date: 20140617
  Receipt Date: 20140617
  Transmission Date: 20141212
  Serious: No
  Sender: FDA-Public Use
  Company Number: US-BAYER-2014-086349

PATIENT
  Age: 64 Year
  Sex: Female
  Weight: 91 kg

DRUGS (3)
  1. ALEVE CAPLET [Suspect]
     Indication: PAIN
     Dosage: 2 DF IN THE MORNING, 1 AT NIGHT
     Route: 048
     Dates: start: 201311
  2. ALEVE CAPLET [Suspect]
     Indication: MUSCULOSKELETAL STIFFNESS
  3. ALEVE CAPLET [Suspect]
     Indication: JOINT RANGE OF MOTION DECREASED

REACTIONS (2)
  - Therapeutic response changed [None]
  - Incorrect drug administration duration [None]
